FAERS Safety Report 19057074 (Version 1)
Quarter: 2021Q1

REPORT INFORMATION
  Report Type: Report from Study
  Country: CR (occurrence: CR)
  Receive Date: 20210324
  Receipt Date: 20210324
  Transmission Date: 20210420
  Serious: Yes (Other)
  Sender: FDA-Public Use
  Company Number: NVSC2021CR063793

PATIENT
  Age: 88 Year
  Sex: Female

DRUGS (3)
  1. CO?DIOVAN [Suspect]
     Active Substance: HYDROCHLOROTHIAZIDE\VALSARTAN
     Indication: PRODUCT USED FOR UNKNOWN INDICATION
     Dosage: 1 DF, 80/ 12.5 MG
     Route: 065
  2. DIOVAN [Suspect]
     Active Substance: VALSARTAN
     Indication: CARDIAC DISORDER
     Dosage: 320 MG (STARTED 4 OR 5 MONTHS AGO)
     Route: 065
  3. CO?DIOVAN [Suspect]
     Active Substance: HYDROCHLOROTHIAZIDE\VALSARTAN
     Dosage: 1 DF,160/ 12.5 MG (DISCONTINUED 4 OR 5 MONTHS AGO)
     Route: 065

REACTIONS (4)
  - Product use in unapproved indication [Unknown]
  - Hypoacusis [Unknown]
  - Infarction [Unknown]
  - Extra dose administered [Unknown]
